FAERS Safety Report 15180785 (Version 2)
Quarter: 2018Q3

REPORT INFORMATION
  Report Type: Spontaneous
  Country: FR (occurrence: FR)
  Receive Date: 20180723
  Receipt Date: 20180723
  Transmission Date: 20181010
  Serious: Yes (Hospitalization)
  Sender: FDA-Public Use
  Company Number: PHHY2018FR051446

PATIENT
  Age: 67 Year
  Sex: Female
  Weight: 119 kg

DRUGS (8)
  1. ONDANSETRON [Suspect]
     Active Substance: ONDANSETRON
     Indication: ANTIEMETIC SUPPORTIVE CARE
     Dosage: 8 MG, UNK
     Route: 048
     Dates: start: 20170822, end: 20180403
  2. COTAREG [Concomitant]
     Active Substance: HYDROCHLOROTHIAZIDE\VALSARTAN
     Indication: PRODUCT USED FOR UNKNOWN INDICATION
     Dosage: UNK
     Route: 048
  3. LEVOFOLINATE CALCIUM [Suspect]
     Active Substance: LEVOLEUCOVORIN CALCIUM
     Indication: RECTOSIGMOID CANCER METASTATIC
     Dosage: 400 MG, Q
     Route: 041
     Dates: start: 20170822, end: 20180403
  4. DOXYCYCLINE. [Concomitant]
     Active Substance: DOXYCYCLINE
     Indication: PRODUCT USED FOR UNKNOWN INDICATION
     Dosage: UNK
     Route: 048
  5. APREPITANT. [Suspect]
     Active Substance: APREPITANT
     Indication: ANTIEMETIC SUPPORTIVE CARE
     Dosage: 80 MG, UNK
     Route: 048
     Dates: start: 20170822, end: 20180403
  6. OXALIPLATINE [Suspect]
     Active Substance: OXALIPLATIN
     Indication: RECTOSIGMOID CANCER METASTATIC
     Dosage: 170 MG, UNK
     Route: 041
     Dates: start: 20170822, end: 20180403
  7. CETUXIMAB. [Suspect]
     Active Substance: CETUXIMAB
     Indication: RECTOSIGMOID CANCER METASTATIC
     Dosage: 1000 MG, UNK
     Route: 041
     Dates: start: 20170822, end: 20180403
  8. FLUOROURACILE [Suspect]
     Active Substance: FLUOROURACIL
     Indication: RECTOSIGMOID CANCER METASTATIC
     Dosage: 5600 MG, UNK
     Route: 041
     Dates: start: 20170822, end: 20180403

REACTIONS (1)
  - Cerebral thrombosis [Unknown]

NARRATIVE: CASE EVENT DATE: 20180409
